FAERS Safety Report 21185193 (Version 1)
Quarter: 2022Q3

REPORT INFORMATION
  Report Type: Spontaneous
  Country: US (occurrence: US)
  Receive Date: 20220808
  Receipt Date: 20220808
  Transmission Date: 20221027
  Serious: Yes (Disabling, Other)
  Sender: FDA-Public Use
  Company Number: US-SA-SAC20220804002215

PATIENT

DRUGS (1)
  1. ZANTAC [Suspect]
     Active Substance: RANITIDINE HYDROCHLORIDE
     Dosage: 150 MG UNK
     Route: 065
     Dates: start: 20140601, end: 20160801

REACTIONS (5)
  - Bladder cancer [Unknown]
  - Disability [Unknown]
  - Pain [Unknown]
  - Anhedonia [Unknown]
  - Anxiety [Unknown]

NARRATIVE: CASE EVENT DATE: 20160914
